FAERS Safety Report 11846208 (Version 1)
Quarter: 2015Q4

REPORT INFORMATION
  Report Type: Spontaneous
  Country: PT (occurrence: PT)
  Receive Date: 20151217
  Receipt Date: 20151217
  Transmission Date: 20160305
  Serious: Yes (Other)
  Sender: FDA-Public Use
  Company Number: PT-HORIZON-VIM-0145-2015

PATIENT
  Age: 55 Year
  Sex: Male
  Weight: 177 kg

DRUGS (2)
  1. VIMOVO [Suspect]
     Active Substance: ESOMEPRAZOLE MAGNESIUM\NAPROXEN
     Indication: OSTEOARTHRITIS
     Dosage: 2 DF EVERY DAY
     Route: 048
     Dates: start: 20151008, end: 20151011
  2. DIAMICRON LM [Concomitant]
     Indication: DIABETES MELLITUS
     Dosage: 1 DF BID
     Route: 048

REACTIONS (3)
  - Blood glucose increased [Unknown]
  - Dysphonia [Unknown]
  - Gastrooesophageal reflux disease [Unknown]

NARRATIVE: CASE EVENT DATE: 20151011
